FAERS Safety Report 17201966 (Version 2)
Quarter: 2020Q1

REPORT INFORMATION
  Report Type: Spontaneous
  Country: US (occurrence: US)
  Receive Date: 20191226
  Receipt Date: 20200203
  Transmission Date: 20200409
  Serious: No
  Sender: FDA-Public Use
  Company Number: US-PFIZER INC-2019546244

PATIENT
  Age: 75 Year
  Sex: Female
  Weight: 91 kg

DRUGS (1)
  1. IBRANCE [Suspect]
     Active Substance: PALBOCICLIB
     Indication: BREAST CANCER METASTATIC
     Dosage: 125 MG, CYCLIC (ONCE A DAY FOR 21 DAYS OFF FOR 7 DAYS)
     Route: 048
     Dates: start: 201910, end: 201911

REACTIONS (5)
  - Pruritus [Not Recovered/Not Resolved]
  - Skin exfoliation [Unknown]
  - White blood cell count decreased [Unknown]
  - Rash [Unknown]
  - Sinusitis [Recovered/Resolved]

NARRATIVE: CASE EVENT DATE: 2019
